FAERS Safety Report 6913986-8 (Version None)
Quarter: 2010Q3

REPORT INFORMATION
  Report Type: 
  Country: None (occurrence: None)
  Receive Date: 20100805
  Receipt Date: 20100805
  Transmission Date: 20110219
  Serious: Yes (Hospitalization)
  Sender: FDA-Public Use
  Company Number: None

PATIENT
  Age: 60 Year
  Sex: Male

DRUGS (1)
  1. CYTARABINE [Suspect]
     Dates: start: 20100507

REACTIONS (2)
  - BACTERIAL SEPSIS [None]
  - PANCYTOPENIA [None]
